FAERS Safety Report 9209988 (Version 1)
Quarter: 2012Q4

REPORT INFORMATION
  Report Type: 
  Country: US (occurrence: US)
  Receive Date: 20120903
  Receipt Date: 20120903
  Transmission Date: 20130627
  Serious: Yes (Other)
  Sender: FDA-Public Use
  Company Number: CHPA2012US011554

PATIENT
  Age: 75 Year
  Sex: Female

DRUGS (1)
  1. HABITROL [Suspect]
     Indication: SMOKING CESSATION THERAPY
     Dosage: 21 mg, QD
     Route: 062
     Dates: start: 2010, end: 2010

REACTIONS (3)
  - Cerebrovascular disorder [Not Recovered/Not Resolved]
  - Concomitant disease aggravated [Not Recovered/Not Resolved]
  - Pneumonia [Recovered/Resolved]
